FAERS Safety Report 4885063-1 (Version None)
Quarter: 2006Q1

REPORT INFORMATION
  Report Type: 
  Country: None (occurrence: None)
  Receive Date: 20060119
  Receipt Date: 20051208
  Transmission Date: 20060701
  Serious: Yes (Death, Hospitalization, Other)
  Sender: FDA-Public Use
  Company Number: US-MERCK-0512USA01510

PATIENT
  Age: 70 Year
  Sex: Female
  Weight: 61 kg

DRUGS (2)
  1. VIOXX [Suspect]
     Indication: ARTHRITIS
     Route: 048
     Dates: start: 20000501, end: 20021101
  2. ZOCOR [Concomitant]
     Route: 048

REACTIONS (4)
  - DEATH [None]
  - ISCHAEMIC STROKE [None]
  - MYOCARDIAL INFARCTION [None]
  - OVERDOSE [None]
